FAERS Safety Report 13220110 (Version 1)
Quarter: 2017Q1

REPORT INFORMATION
  Report Type: Spontaneous
  Country: AU (occurrence: AU)
  Receive Date: 20170210
  Receipt Date: 20170210
  Transmission Date: 20170428
  Serious: Yes (Other)
  Sender: FDA-Public Use
  Company Number: AU-TORRENT-00000041

PATIENT
  Age: 24 Year
  Sex: Male
  Weight: 112 kg

DRUGS (3)
  1. PALIPERIDONE. [Suspect]
     Active Substance: PALIPERIDONE
  2. OLANZAPINE. [Suspect]
     Active Substance: OLANZAPINE
  3. ESCITALOPRAM [Suspect]
     Active Substance: ESCITALOPRAM OXALATE

REACTIONS (2)
  - Hepatic function abnormal [Unknown]
  - Ejection fraction decreased [Unknown]
